FAERS Safety Report 18598566 (Version 1)
Quarter: 2020Q4

REPORT INFORMATION
  Report Type: Spontaneous
  Country: PL (occurrence: PL)
  Receive Date: 20201210
  Receipt Date: 20201210
  Transmission Date: 20210114
  Serious: Yes (Other)
  Sender: FDA-Public Use
  Company Number: PL-ROCHE-2728111

PATIENT

DRUGS (2)
  1. VEMURAFENIB. [Suspect]
     Active Substance: VEMURAFENIB
     Indication: MALIGNANT MELANOMA
     Dosage: 8 COURSES
     Route: 065
     Dates: start: 201609, end: 201703
  2. COBIMETINIB. [Suspect]
     Active Substance: COBIMETINIB
     Indication: MALIGNANT MELANOMA
     Dosage: 6 SERIES
     Route: 065
     Dates: start: 201704, end: 201710

REACTIONS (8)
  - Squamous cell carcinoma of skin [Unknown]
  - Basal cell carcinoma [Unknown]
  - Retinopathy [Recovering/Resolving]
  - Blood bilirubin increased [Unknown]
  - Diarrhoea [Not Recovered/Not Resolved]
  - Rash maculo-papular [Unknown]
  - Hyperkeratosis [Unknown]
  - Blood creatinine increased [Unknown]
